FAERS Safety Report 11505416 (Version 1)
Quarter: 2015Q3

REPORT INFORMATION
  Report Type: Spontaneous
  Country: US (occurrence: US)
  Receive Date: 20150915
  Receipt Date: 20150915
  Transmission Date: 20151125
  Serious: No
  Sender: FDA-Public Use
  Company Number: US-ROCHE-767187

PATIENT
  Age: 37 Year
  Sex: Female
  Weight: 80.3 kg

DRUGS (2)
  1. PEGASYS [Suspect]
     Active Substance: PEGINTERFERON ALFA-2A
     Indication: HEPATITIS C
     Route: 058
     Dates: start: 201001, end: 201101
  2. RIBASPHERE RIBAPAK [Suspect]
     Active Substance: RIBAVIRIN
     Indication: HEPATITIS C
     Dosage: OTHER STRENGTH: 600 MG. PATIENT TOOK 400 MG AND 600 MG TABLET
     Route: 048
     Dates: start: 201001, end: 201101

REACTIONS (2)
  - No adverse event [Unknown]
  - Pregnancy [Unknown]

NARRATIVE: CASE EVENT DATE: 201102
